FAERS Safety Report 13750503 (Version 1)
Quarter: 2017Q3

REPORT INFORMATION
  Report Type: Spontaneous
  Country: US (occurrence: US)
  Receive Date: 20170713
  Receipt Date: 20170713
  Transmission Date: 20171127
  Serious: No
  Sender: FDA-Public Use
  Company Number: US-ASTELLAS-2016US034879

PATIENT
  Sex: Male

DRUGS (5)
  1. MYRBETRIQ [Suspect]
     Active Substance: MIRABEGRON
     Indication: NOCTURIA
     Route: 048
  2. MYRBETRIQ [Suspect]
     Active Substance: MIRABEGRON
     Indication: URINARY RETENTION
     Route: 048
  3. COUMADIN [Concomitant]
     Active Substance: WARFARIN SODIUM
     Indication: PRODUCT USED FOR UNKNOWN INDICATION
     Dosage: UNK UNK, UNKNOWN FREQ.
     Route: 065
  4. MYRBETRIQ [Suspect]
     Active Substance: MIRABEGRON
     Indication: POLLAKIURIA
     Route: 048
  5. MYRBETRIQ [Suspect]
     Active Substance: MIRABEGRON
     Indication: URGE INCONTINENCE

REACTIONS (7)
  - Blood pressure decreased [Not Recovered/Not Resolved]
  - Therapeutic response unexpected [Unknown]
  - Urinary incontinence [Unknown]
  - Dizziness [Unknown]
  - Drug effect incomplete [Unknown]
  - Drug ineffective [Not Recovered/Not Resolved]
  - Treatment noncompliance [Unknown]
